FAERS Safety Report 24806465 (Version 2)
Quarter: 2025Q4

REPORT INFORMATION
  Report Type: Spontaneous
  Country: US (occurrence: US)
  Receive Date: 20250103
  Receipt Date: 20251114
  Transmission Date: 20260118
  Serious: Yes (Other)
  Sender: SUNOVION
  Company Number: US-SUMITOMO PHARMA SWITZERLAND GMBH-2024SPA006749

PATIENT
  Sex: Female

DRUGS (1)
  1. GEMTESA [Suspect]
     Active Substance: VIBEGRON
     Route: 048

REACTIONS (2)
  - Atrial fibrillation [Unknown]
  - Ventricular extrasystoles [Unknown]
